FAERS Safety Report 5209376-9 (Version None)
Quarter: 2006Q4

REPORT INFORMATION
  Report Type: 
  Country: None (occurrence: None)
  Receive Date: 20061101
  Receipt Date: 20060831
  Transmission Date: 20070319
  Serious: No
  Sender: FDA-Public Use
  Company Number: CLOF-10316

PATIENT
  Sex: 0

DRUGS (1)
  1. CLOFARABINE [Suspect]
     Indication: LYMPHOCYTIC LEUKAEMIA

REACTIONS (1)
  - ASPARTATE AMINOTRANSFERASE INCREASED [None]
